FAERS Safety Report 8575276-X (Version None)
Quarter: 2012Q3

REPORT INFORMATION
  Report Type: 
  Country: None (occurrence: None)
  Receive Date: 20120807
  Receipt Date: 20120802
  Transmission Date: 20120928
  Serious: Yes (Other)
  Sender: FDA-Public Use
  Company Number: US-PFIZER INC-2012179622

PATIENT
  Age: 14 Year
  Sex: Female
  Weight: 43.084 kg

DRUGS (1)
  1. SUTENT [Suspect]
     Indication: SARCOMA
     Dosage: 15 MG, 1X/DAY
     Dates: start: 20120710, end: 20120715

REACTIONS (4)
  - DISEASE PROGRESSION [None]
  - SARCOMA [None]
  - WEIGHT INCREASED [None]
  - PNEUMOTHORAX [None]
